FAERS Safety Report 25785428 (Version 1)
Quarter: 2025Q3

REPORT INFORMATION
  Report Type: Spontaneous
  Country: US (occurrence: US)
  Receive Date: 20250910
  Receipt Date: 20250910
  Transmission Date: 20251020
  Serious: No
  Sender: COSETTE PHARMACEUTICALS INC
  Company Number: US-COSETTE-CP2025US000877

PATIENT
  Sex: Male

DRUGS (7)
  1. NYSTATIN [Suspect]
     Active Substance: NYSTATIN
     Indication: Rash
     Route: 065
     Dates: start: 202507
  2. DESITIN [ZINC OXIDE] [Concomitant]
     Indication: Dermatitis diaper
     Route: 065
  3. AQUAPHOR BABY [Concomitant]
     Indication: Dermatitis diaper
     Route: 065
  4. A+D ORIGINAL [Concomitant]
     Indication: Dermatitis diaper
     Route: 065
  5. BOUDREAUXS BUTT [Concomitant]
     Indication: Dermatitis diaper
     Route: 065
  6. BABY POWDER [TALC] [Concomitant]
     Indication: Dermatitis diaper
     Route: 065
  7. STARCH, CORN [Concomitant]
     Active Substance: STARCH, CORN
     Indication: Dermatitis diaper
     Route: 065

REACTIONS (1)
  - Drug ineffective [Unknown]

NARRATIVE: CASE EVENT DATE: 20250701
